FAERS Safety Report 10719533 (Version 2)
Quarter: 2015Q1

REPORT INFORMATION
  Report Type: Spontaneous
  Country: US (occurrence: US)
  Receive Date: 20150119
  Receipt Date: 20150119
  Transmission Date: 20150721
  Serious: Yes (Other)
  Sender: FDA-Public Use
  Company Number: US-UNITED THERAPEUTICS-UNT-2014-004463

PATIENT
  Age: 53 Year
  Sex: Female
  Weight: 49.89 kg

DRUGS (3)
  1. REMODULIN [Suspect]
     Active Substance: TREPROSTINIL
     Indication: COR PULMONALE CHRONIC
     Dosage: 0.024 ?G/KG/MIN, CONTINUING
     Route: 058
     Dates: start: 20130925
  2. REMODULIN [Suspect]
     Active Substance: TREPROSTINIL
     Indication: PULMONARY HYPERTENSION
  3. ADCIRCA [Concomitant]
     Active Substance: TADALAFIL
     Indication: PRODUCT USED FOR UNKNOWN INDICATION

REACTIONS (9)
  - Infusion site warmth [Recovering/Resolving]
  - Chest discomfort [Unknown]
  - Infusion site haemorrhage [Unknown]
  - Dermatitis contact [Unknown]
  - Infusion site erythema [Recovering/Resolving]
  - Infusion site oedema [Recovering/Resolving]
  - Musculoskeletal chest pain [Unknown]
  - Infusion site infection [Unknown]
  - Infusion site pain [Unknown]

NARRATIVE: CASE EVENT DATE: 20140717
